FAERS Safety Report 9690550 (Version 3)
Quarter: 2014Q3

REPORT INFORMATION
  Report Type: Spontaneous
  Country: US (occurrence: US)
  Receive Date: 20131115
  Receipt Date: 20140912
  Transmission Date: 20150326
  Serious: No
  Sender: FDA-Public Use
  Company Number: US-PFIZER INC-2013325825

PATIENT
  Age: 73 Year
  Sex: Female
  Weight: 82.54 kg

DRUGS (23)
  1. SPIRONOLACTONE. [Concomitant]
     Active Substance: SPIRONOLACTONE
     Dosage: 25 MG, 2X/DAY
  2. LANTUS [Concomitant]
     Active Substance: INSULIN GLARGINE
     Indication: DIABETES MELLITUS
     Dosage: 24 UNITS, 2X/DAY
  3. WELBY HEALTH COMPLETE 50+ MULTIVITAMIN MULTIFUNCTIONAL SUPPLEMENT [Concomitant]
     Indication: VITAMIN SUPPLEMENTATION
     Dosage: UNK
  4. FISH OIL [Concomitant]
     Active Substance: FISH OIL
     Dosage: 1000 MG, 2X/DAY
  5. POTASSIUM CHLORIDE. [Concomitant]
     Active Substance: POTASSIUM CHLORIDE
     Dosage: 10 MEQ, 2X/DAY
  6. VITAMIN E [Concomitant]
     Active Substance: .ALPHA.-TOCOPHEROL
     Indication: CARDIAC DISORDER
     Dosage: 400 IU, UNK
  7. LYRICA [Suspect]
     Active Substance: PREGABALIN
     Indication: DIABETIC NEUROPATHY
     Dosage: 100 MG, 2X/DAY
     Route: 048
     Dates: start: 2011
  8. VASOTEC [Concomitant]
     Active Substance: ENALAPRIL MALEATE
     Dosage: 10 MG, 2X/DAY
  9. LEXAPRO [Concomitant]
     Active Substance: ESCITALOPRAM OXALATE
     Dosage: 20 MG, 1X/DAY
  10. OMEPRAZOLE. [Concomitant]
     Active Substance: OMEPRAZOLE
     Dosage: 20 MG, 2X/DAY
  11. FENOFIBRIC ACID. [Concomitant]
     Active Substance: FENOFIBRIC ACID
     Dosage: 135 MG, 1X/DAY
  12. TOPROL XL [Concomitant]
     Active Substance: METOPROLOL SUCCINATE
     Dosage: 50 MG, 1X/DAY
  13. NOVOLOG [Concomitant]
     Active Substance: INSULIN ASPART
     Indication: DIABETES MELLITUS
     Dosage: THREE UNITS BEFORE BREAKFAST AND EIGHT UNITS BEFORE LUNCH AND SUPPER EACH
  14. CALCIUM/VITAMIN D3 [Concomitant]
     Dosage: 1200 MG, 2X/DAY
  15. PREDNISONE. [Concomitant]
     Active Substance: PREDNISONE
     Indication: HEPATIC CIRRHOSIS
     Dosage: 5 MG, 1X/DAY
  16. ZETIA [Concomitant]
     Active Substance: EZETIMIBE
     Dosage: 10 MG, 1X/DAY AT BEDTIME
  17. MYSOLINE [Concomitant]
     Active Substance: PRIMIDONE
     Dosage: 50 MG, 2X/DAY
  18. CRESTOR [Concomitant]
     Active Substance: ROSUVASTATIN CALCIUM
     Dosage: 20 MG, 1X/DAY
  19. LASIX [Concomitant]
     Active Substance: FUROSEMIDE
     Dosage: 80 MG, 1X/DAY
  20. GLUCOPHAGE [Concomitant]
     Active Substance: METFORMIN HYDROCHLORIDE
     Dosage: 500 MG, 3X/DAY
  21. ZANTAC [Concomitant]
     Active Substance: RANITIDINE HYDROCHLORIDE
     Dosage: 300 MG, 1X/DAY AT BEDTIME
  22. BYETTA [Concomitant]
     Active Substance: EXENATIDE
     Indication: DIABETES MELLITUS
     Dosage: TWO TIMES A DAY (ONCE BEFORE BREAKFAST AND ONCE BEFORE SUPPER)
  23. FOLIC ACID. [Concomitant]
     Active Substance: FOLIC ACID
     Dosage: UNK

REACTIONS (2)
  - Nasopharyngitis [Not Recovered/Not Resolved]
  - Malaise [Not Recovered/Not Resolved]

NARRATIVE: CASE EVENT DATE: 20131109
